FAERS Safety Report 20432516 (Version 1)
Quarter: 2022Q1

REPORT INFORMATION
  Report Type: Spontaneous
  Country: US (occurrence: US)
  Receive Date: 20220204
  Receipt Date: 20220204
  Transmission Date: 20220423
  Serious: No
  Sender: FDA-Public Use
  Company Number: US-PERRIGO-21US001655

PATIENT
  Sex: Female

DRUGS (2)
  1. TRETINOIN [Suspect]
     Active Substance: TRETINOIN
     Indication: Solar lentigo
     Dosage: UNKNOWN, UNKNOWN
     Route: 061
     Dates: end: 202102
  2. TRETINOIN [Suspect]
     Active Substance: TRETINOIN
     Indication: Skin hyperpigmentation
     Dosage: UNKNOWN, UNKNOWN
     Route: 061
     Dates: start: 202102

REACTIONS (2)
  - Drug effective for unapproved indication [Not Recovered/Not Resolved]
  - Therapeutic product effect decreased [Unknown]

NARRATIVE: CASE EVENT DATE: 20210201
